FAERS Safety Report 25811583 (Version 1)
Quarter: 2025Q3

REPORT INFORMATION
  Report Type: Report from Study
  Country: US (occurrence: US)
  Receive Date: 20250917
  Receipt Date: 20250917
  Transmission Date: 20251021
  Serious: No
  Sender: SUNOVION
  Company Number: US-SUMITOMO PHARMA SWITZERLAND GMBH-2025SPA011588

PATIENT
  Age: 90 Year
  Sex: Male

DRUGS (16)
  1. ORGOVYX [Suspect]
     Active Substance: RELUGOLIX
     Indication: Prostate cancer
     Route: 048
  2. ORGOVYX [Suspect]
     Active Substance: RELUGOLIX
     Route: 048
  3. ACETAMINOPHEN [Concomitant]
     Active Substance: ACETAMINOPHEN
  4. ADVIL COLD AND SINUS [Concomitant]
     Active Substance: IBUPROFEN\PSEUDOEPHEDRINE HYDROCHLORIDE
  5. AMLODIPINE [Concomitant]
     Active Substance: AMLODIPINE BESYLATE
  6. BENADRYL [Concomitant]
     Active Substance: DIPHENHYDRAMINE HYDROCHLORIDE
  7. CIPROFLOXACIN [Concomitant]
     Active Substance: CIPROFLOXACIN
  8. DULOXETINE [Concomitant]
     Active Substance: DULOXETINE
  9. GLIMEPIRIDE [Concomitant]
     Active Substance: GLIMEPIRIDE
  10. IBUPROFEN [Concomitant]
     Active Substance: IBUPROFEN
  11. PREDNISONE [Concomitant]
     Active Substance: PREDNISONE
  12. PROMETHAZINE [Concomitant]
     Active Substance: PROMETHAZINE HYDROCHLORIDE
  13. TIMOLOL MALEATE [Concomitant]
     Active Substance: TIMOLOL MALEATE
     Route: 047
  14. VALSARTAN [Concomitant]
     Active Substance: VALSARTAN
  15. VITAMIN B12 [Concomitant]
     Active Substance: CYANOCOBALAMIN
  16. ZOFRAN [Concomitant]
     Active Substance: ONDANSETRON HYDROCHLORIDE

REACTIONS (5)
  - Peripheral swelling [Unknown]
  - Joint swelling [Unknown]
  - Pruritus [Unknown]
  - Memory impairment [Unknown]
  - Arthralgia [Unknown]
